FAERS Safety Report 5101897-2 (Version None)
Quarter: 2006Q3

REPORT INFORMATION
  Report Type: 
  Country: None (occurrence: None)
  Receive Date: 20060907
  Receipt Date: 20060821
  Transmission Date: 20061208
  Serious: Yes (Death, Hospitalization, Other)
  Sender: FDA-Public Use
  Company Number: US200605006316

PATIENT
  Age: 56 Year
  Sex: Male

DRUGS (3)
  1. GEMZAR [Suspect]
     Indication: HEPATIC CANCER STAGE IV
     Dosage: 1000 MG/M2, OTHER, INTRAVENOUS
     Route: 042
     Dates: start: 20060501
  2. AVASTIN [Concomitant]
  3. OXALIPLATIN [Concomitant]

REACTIONS (3)
  - ASCITES [None]
  - INTESTINAL OBSTRUCTION [None]
  - MALIGNANT NEOPLASM PROGRESSION [None]
